FAERS Safety Report 4745431-5 (Version None)
Quarter: 2005Q3

REPORT INFORMATION
  Report Type: 
  Country: None (occurrence: None)
  Receive Date: 20050812
  Receipt Date: 20040723
  Transmission Date: 20060218
  Serious: Yes (Other)
  Sender: FDA-Public Use
  Company Number: PHEH2004US08031

PATIENT
  Age: 77 Year
  Sex: Male

DRUGS (5)
  1. VISUDYNE [Suspect]
     Indication: MACULAR DEGENERATION
     Dosage: 2 MG/ML  ONCE  IV
     Route: 042
     Dates: start: 20040721, end: 20040721
  2. HYDROCHLOROTHIAZIDE [Concomitant]
  3. TERAZOSIN [Concomitant]
  4. M.V.I. RETINOL [Concomitant]
  5. CARDIZEM [Concomitant]

REACTIONS (8)
  - DISORIENTATION [None]
  - DIZZINESS [None]
  - DYSPNOEA [None]
  - HYPERHIDROSIS [None]
  - HYPOTENSION [None]
  - PALLOR [None]
  - PULSE PRESSURE DECREASED [None]
  - SYNCOPE VASOVAGAL [None]
